FAERS Safety Report 4369473-7 (Version None)
Quarter: 2004Q2

REPORT INFORMATION
  Report Type: 
  Country: None (occurrence: None)
  Receive Date: 20040527
  Receipt Date: 20040517
  Transmission Date: 20050107
  Serious: Yes (Hospitalization, Disabling, Other)
  Sender: FDA-Public Use
  Company Number: 163-20785-03050121

PATIENT
  Age: 56 Year
  Sex: Female
  Weight: 69.8539 kg

DRUGS (17)
  1. THALOMID [Suspect]
     Indication: MULTIPLE MYELOMA
     Dosage: 100 MG, DAILY, ORAL : 200 MG, DAILY, ORAL : 50 MG, DAILY , ORAL : 200 MG
     Route: 048
     Dates: start: 20011001, end: 20011101
  2. THALOMID [Suspect]
     Indication: MULTIPLE MYELOMA
     Dosage: 100 MG, DAILY, ORAL : 200 MG, DAILY, ORAL : 50 MG, DAILY , ORAL : 200 MG
     Route: 048
     Dates: start: 20011101, end: 20021001
  3. THALOMID [Suspect]
     Indication: MULTIPLE MYELOMA
     Dosage: 100 MG, DAILY, ORAL : 200 MG, DAILY, ORAL : 50 MG, DAILY , ORAL : 200 MG
     Route: 048
     Dates: start: 20021001, end: 20030701
  4. THALOMID [Suspect]
     Indication: MULTIPLE MYELOMA
     Dosage: 100 MG, DAILY, ORAL : 200 MG, DAILY, ORAL : 50 MG, DAILY , ORAL : 200 MG
     Route: 048
     Dates: start: 20030701
  5. DECADRON [Concomitant]
  6. NEURONTIN [Concomitant]
  7. SYNTHROID [Concomitant]
  8. VITAMIN CAP [Concomitant]
  9. FLAXSEED (LINSEED OIL) [Concomitant]
  10. ACIDOPHILIS (LACTOBACILLUS ACIDOPHILUS) [Concomitant]
  11. COLACE (DOCUSATE SODIUM) [Concomitant]
  12. DARVOCET-N 100 [Concomitant]
  13. MIRALAX [Concomitant]
  14. DURAGESIC [Concomitant]
  15. ZYRTEC [Concomitant]
  16. PROTONIX [Concomitant]
  17. STOOL SOFTENER [Concomitant]

REACTIONS (21)
  - ABASIA [None]
  - BLOOD POTASSIUM DECREASED [None]
  - CENTRAL NERVOUS SYSTEM NEOPLASM [None]
  - CONFUSIONAL STATE [None]
  - DEPRESSION [None]
  - EMOTIONAL DISTRESS [None]
  - HEADACHE [None]
  - HYPERHIDROSIS [None]
  - HYPOAESTHESIA [None]
  - INADEQUATE DIET [None]
  - INSOMNIA [None]
  - MALIGNANT NEOPLASM PROGRESSION [None]
  - METASTASIS [None]
  - MITRAL VALVE PROLAPSE [None]
  - MULTIPLE MYELOMA [None]
  - NEUROPATHY PERIPHERAL [None]
  - PARALYSIS [None]
  - SPLENIC CYST [None]
  - THROMBOSIS [None]
  - VIRAL INFECTION [None]
  - WHITE BLOOD CELL COUNT DECREASED [None]
